FAERS Safety Report 23188171 (Version 10)
Quarter: 2024Q4

REPORT INFORMATION
  Report Type: Spontaneous
  Country: US (occurrence: US)
  Receive Date: 20231115
  Receipt Date: 20241220
  Transmission Date: 20250115
  Serious: Yes (Hospitalization, Other)
  Sender: PFIZER
  Company Number: US-PFIZER INC-PV202300182220

PATIENT
  Age: 77 Year
  Sex: Female
  Weight: 79.365 kg

DRUGS (23)
  1. IBRANCE [Suspect]
     Active Substance: PALBOCICLIB
     Indication: Breast cancer female
     Dosage: 125 MG
  2. IBRANCE [Suspect]
     Active Substance: PALBOCICLIB
     Dosage: 100 MG, DAILY
     Route: 048
     Dates: start: 20230917, end: 20231007
  3. IBRANCE [Suspect]
     Active Substance: PALBOCICLIB
     Dosage: 21/28 DAYS
     Route: 048
     Dates: end: 20231214
  4. IBRANCE [Suspect]
     Active Substance: PALBOCICLIB
     Dosage: 75 MG
  5. IBRANCE [Suspect]
     Active Substance: PALBOCICLIB
     Dosage: 21 DAYS OF 28 DAYS
  6. IBRANCE [Suspect]
     Active Substance: PALBOCICLIB
     Dosage: 1 TAB 3 DAYS PER WEEK
  7. IBRANCE [Suspect]
     Active Substance: PALBOCICLIB
     Dosage: 1 TAB ORALLY 3 DAYS PER WEEK FOR 3 WEEKS THEN TAKE ONE WEEK OFF
     Route: 048
  8. IBRANCE [Suspect]
     Active Substance: PALBOCICLIB
     Dosage: 3 DAYS A WEEK OF A 21 DAYS CYCLE
     Dates: start: 20240107
  9. LETROZOLE [Suspect]
     Active Substance: LETROZOLE
     Dosage: 1 TABLET ORALLY DAILY
     Route: 048
     Dates: end: 20241011
  10. DENOSUMAB [Suspect]
     Active Substance: DENOSUMAB
     Dosage: UNK
     Dates: end: 202410
  11. LEVOTHYROXINE [Concomitant]
     Active Substance: LEVOTHYROXINE
     Dosage: 25 MCG TABLET PO QD
     Route: 048
  12. LEVOTHYROXINE [Concomitant]
     Active Substance: LEVOTHYROXINE
     Dosage: 25 MCG TABLET PO (PER ORAL) QD (ONCE A DAY)
     Route: 048
  13. VITAMIN B COMPLEX [Concomitant]
     Active Substance: CYANOCOBALAMIN\DEXPANTHENOL\NIACINAMIDE\PYRIDOXINE HYDROCHLORIDE\RIBOFLAVIN 5^-PHOSPHATE SODIUM\THIA
     Dosage: UNK, DAILY
     Route: 048
  14. VITAMIN B COMPLEX [Concomitant]
     Active Substance: CYANOCOBALAMIN\DEXPANTHENOL\NIACINAMIDE\PYRIDOXINE HYDROCHLORIDE\RIBOFLAVIN 5^-PHOSPHATE SODIUM\THIA
     Dosage: ORAL CAPSULE PO (PER ORAL) QD (ONCE A DAY)
     Route: 048
  15. XARELTO [Concomitant]
     Active Substance: RIVAROXABAN
     Dosage: UNK, DAILY
     Route: 048
  16. XARELTO [Concomitant]
     Active Substance: RIVAROXABAN
     Dosage: 20 MG TABLET PO (PER ORAL) QD (ONCE A DAY)
     Route: 048
  17. FUROSEMIDE [Concomitant]
     Active Substance: FUROSEMIDE
     Dosage: UNK, DAILY
     Route: 048
  18. FUROSEMIDE [Concomitant]
     Active Substance: FUROSEMIDE
     Dosage: 20 MG TABLET PO (PER ORAL) QD (ONCE A DAY)
  19. ALLOPURINOL [Concomitant]
     Active Substance: ALLOPURINOL
     Dosage: ORAL 300 MG TABLET PO (PER ORAL) QD (ONCE A DAY)
     Route: 048
  20. ALLOPURINOL [Concomitant]
     Active Substance: ALLOPURINOL
     Dosage: 300 MG TABLET 1 TABLET ORALLY DAILY
     Route: 048
  21. VERAPAMIL [Concomitant]
     Active Substance: VERAPAMIL HYDROCHLORIDE
     Dosage: UNK, DAILY
     Route: 048
  22. VERAPAMIL [Concomitant]
     Active Substance: VERAPAMIL HYDROCHLORIDE
     Dosage: 180 MG TABLET EXTENDED RELEASE PO (PER ORAL) QD (ONCE A DAY)
     Route: 048
  23. VITAMINS [Concomitant]
     Active Substance: VITAMINS
     Dosage: ORAL TABLET PO (PER ORAL) QD (ONCE A DAY)
     Route: 048

REACTIONS (18)
  - Immune system disorder [Unknown]
  - White blood cell count decreased [Unknown]
  - Alopecia [Not Recovered/Not Resolved]
  - Stomatitis [Recovered/Resolved]
  - Decreased appetite [Recovered/Resolved]
  - Neutropenia [Recovered/Resolved]
  - Fatigue [Recovered/Resolved]
  - Nasopharyngitis [Recovered/Resolved]
  - Diarrhoea [Recovered/Resolved]
  - Constipation [Unknown]
  - Pain in extremity [Recovering/Resolving]
  - Arthralgia [Recovered/Resolved]
  - Cough [Unknown]
  - Myalgia [Unknown]
  - Blood pressure systolic increased [Unknown]
  - Pain [Unknown]
  - Memory impairment [Unknown]
  - Off label use [Unknown]

NARRATIVE: CASE EVENT DATE: 20230917
